FAERS Safety Report 6804722-4 (Version None)
Quarter: 2010Q2

REPORT INFORMATION
  Report Type: 
  Country: None (occurrence: None)
  Receive Date: 20100628
  Receipt Date: 20070514
  Transmission Date: 20101027
  Serious: No
  Sender: FDA-Public Use
  Company Number: US-PFIZER INC-2007038450

PATIENT
  Sex: Male
  Weight: 95.25 kg

DRUGS (5)
  1. XALATAN [Suspect]
     Indication: GLAUCOMA
     Dates: start: 20050101
  2. LIPITOR [Concomitant]
  3. ACETYLSALICYLIC ACID [Concomitant]
  4. FOLIC ACID [Concomitant]
  5. TOPROL-XL [Concomitant]

REACTIONS (2)
  - INTRAOCULAR PRESSURE INCREASED [None]
  - THERAPEUTIC RESPONSE DECREASED [None]
